FAERS Safety Report 20538829 (Version 3)
Quarter: 2022Q2

REPORT INFORMATION
  Report Type: Spontaneous
  Country: DE (occurrence: DE)
  Receive Date: 20220302
  Receipt Date: 20220422
  Transmission Date: 20220721
  Serious: Yes (Hospitalization, Other)
  Sender: FDA-Public Use
  Company Number: DE-TAKEDA-2022TUS012462

PATIENT
  Age: 66 Year
  Sex: Male

DRUGS (1)
  1. KIOVIG [Suspect]
     Active Substance: HUMAN IMMUNOGLOBULIN G
     Indication: Secondary immunodeficiency
     Dosage: UNK
     Route: 065

REACTIONS (4)
  - Rash maculo-papular [Unknown]
  - Superinfection bacterial [Unknown]
  - T-cell lymphoma recurrent [Unknown]
  - Viral rash [Unknown]
